FAERS Safety Report 9993047 (Version 1)
Quarter: 2014Q1

REPORT INFORMATION
  Report Type: Spontaneous
  Country: US (occurrence: US)
  Receive Date: 20140310
  Receipt Date: 20140310
  Transmission Date: 20141002
  Serious: No
  Sender: FDA-Public Use
  Company Number: US-ABBVIE-13P-163-1090945-00

PATIENT
  Age: 25 Year
  Sex: Female
  Weight: 83.99 kg

DRUGS (3)
  1. LUPRON DEPOT [Suspect]
     Indication: ENDOMETRIOSIS
     Route: 030
     Dates: start: 20120824, end: 20121124
  2. NORETHINDRONE ACETATE [Concomitant]
     Indication: HOT FLUSH
     Route: 048
     Dates: start: 2012, end: 201302
  3. NORETHINDRONE ACETATE [Concomitant]
     Indication: BONE DENSITY ABNORMAL

REACTIONS (2)
  - Madarosis [Not Recovered/Not Resolved]
  - Alopecia [Not Recovered/Not Resolved]
